FAERS Safety Report 19772323 (Version 1)
Quarter: 2021Q3

REPORT INFORMATION
  Report Type: Spontaneous
  Country: US (occurrence: US)
  Receive Date: 20210828
  Receipt Date: 20210828
  Transmission Date: 20211014
  Serious: No
  Sender: FDA-Public Use
  Company Number: None

PATIENT
  Age: 72 Year
  Sex: Female
  Weight: 64 kg

DRUGS (1)
  1. ELOXATIN [Suspect]
     Active Substance: OXALIPLATIN
     Indication: PRODUCT USED FOR UNKNOWN INDICATION
     Dates: end: 20210728

REACTIONS (7)
  - Chest discomfort [None]
  - Urticaria [None]
  - Nasal congestion [None]
  - Swollen tongue [None]
  - Lip swelling [None]
  - Infusion related reaction [None]
  - Burning sensation [None]

NARRATIVE: CASE EVENT DATE: 20210811
